FAERS Safety Report 10601530 (Version 1)
Quarter: 2014Q4

REPORT INFORMATION
  Report Type: Spontaneous
  Country: US (occurrence: None)
  Receive Date: 20141120
  Receipt Date: 20141120
  Transmission Date: 20150529
  Serious: Yes (Hospitalization)
  Sender: FDA-Public Use
  Company Number: QSC-2014-0860

PATIENT
  Age: 12 Year
  Sex: Male
  Weight: 88.2 kg

DRUGS (10)
  1. PRILOSEC [Concomitant]
     Active Substance: OMEPRAZOLE MAGNESIUM
  2. LASIX /00032601/ (FUROSEMIDE) [Concomitant]
  3. PREDNISONE (PREDNISONE) [Concomitant]
     Active Substance: PREDNISONE
  4. PROGRAF [Concomitant]
     Active Substance: TACROLIMUS\TACROLIMUS ANHYDROUS
  5. PROGRAF [Concomitant]
     Active Substance: TACROLIMUS\TACROLIMUS ANHYDROUS
  6. LIPITOR [Concomitant]
     Active Substance: ATORVASTATIN CALCIUM
  7. VITAMIN D /00107901/ (ERGOCALCIFEROL) [Concomitant]
  8. LISINOPRIL (LISINOPRIL) [Concomitant]
     Active Substance: LISINOPRIL
  9. H.P. ACTHAR [Suspect]
     Active Substance: CORTICOTROPIN
     Indication: GLOMERULONEPHRITIS
     Dosage: 80 UNITS
     Route: 058
     Dates: start: 20141009
  10. ALLEGRA (FEXOFENADINE HYDROCHLORIDE) [Concomitant]

REACTIONS (13)
  - Oedema [None]
  - Diarrhoea [None]
  - Upper respiratory tract infection [None]
  - Fluid overload [None]
  - Generalised oedema [None]
  - Abdominal pain [None]
  - Nephrotic syndrome [None]
  - Hypoalbuminaemia [None]
  - Gastroenteritis [None]
  - Fatigue [None]
  - Laryngitis [None]
  - Vomiting [None]
  - Ascites [None]

NARRATIVE: CASE EVENT DATE: 2014
